FAERS Safety Report 9927520 (Version 2)
Quarter: 2014Q2

REPORT INFORMATION
  Report Type: Report from Study
  Country: JP (occurrence: JP)
  Receive Date: 20140227
  Receipt Date: 20140429
  Transmission Date: 20141212
  Serious: Yes (Other)
  Sender: FDA-Public Use
  Company Number: JP-ROCHE-1356320

PATIENT
  Age: 73 Year
  Sex: Male

DRUGS (2)
  1. RANIBIZUMAB [Suspect]
     Indication: AGE-RELATED MACULAR DEGENERATION
     Route: 050
     Dates: start: 20090715, end: 20090715
  2. VIGAMOX [Concomitant]
     Dosage: THERAPY START DATE: 07//2009?THERAPY END DATE: 07//2009
     Route: 065

REACTIONS (2)
  - Vitreous haemorrhage [Recovering/Resolving]
  - Haematoma [Recovering/Resolving]
